FAERS Safety Report 25557210 (Version 1)
Quarter: 2025Q3

REPORT INFORMATION
  Report Type: Spontaneous
  Country: US (occurrence: US)
  Receive Date: 20250715
  Receipt Date: 20250715
  Transmission Date: 20251021
  Serious: Yes (Hospitalization)
  Sender: BRISTOL-MYERS SQUIBB COMPANY
  Company Number: US-BRISTOL-MYERS SQUIBB COMPANY-2025-099205

PATIENT
  Age: 78 Year
  Sex: Male
  Weight: 66.68 kg

DRUGS (1)
  1. THALOMID [Suspect]
     Active Substance: THALIDOMIDE
     Indication: Chronic lymphocytic leukaemia
     Dosage: DAILY
     Route: 048

REACTIONS (2)
  - Gait inability [Recovering/Resolving]
  - Off label use [Unknown]
